FAERS Safety Report 4379491-0 (Version None)
Quarter: 2004Q2

REPORT INFORMATION
  Report Type: 
  Country: None (occurrence: None)
  Receive Date: 20040601
  Receipt Date: 20040406
  Transmission Date: 20050107
  Serious: No
  Sender: FDA-Public Use
  Company Number: WAES 0404USA00773

PATIENT
  Age: 73 Year
  Sex: Female

DRUGS (1)
  1. ZETIA [Suspect]
     Indication: BLOOD CHOLESTEROL INCREASED
     Dosage: 10 MG/DAILY/PO
     Route: 048
     Dates: end: 20040405

REACTIONS (3)
  - DIZZINESS [None]
  - HYPOAESTHESIA [None]
  - MUSCULAR WEAKNESS [None]
